FAERS Safety Report 17507620 (Version 1)
Quarter: 2020Q1

REPORT INFORMATION
  Report Type: Spontaneous
  Country: RO (occurrence: RO)
  Receive Date: 20200306
  Receipt Date: 20200306
  Transmission Date: 20200409
  Serious: Yes (Hospitalization, Other)
  Sender: FDA-Public Use
  Company Number: RO-VISTAPHARM, INC.-VER202002-000481

PATIENT
  Age: 26 Day
  Sex: Male

DRUGS (1)
  1. HYDROCODONE AND ACETAMINOPHEN [Suspect]
     Active Substance: ACETAMINOPHEN\HYDROCODONE
     Indication: PYREXIA
     Dosage: 1.5 ML

REACTIONS (3)
  - Haemolysis [Unknown]
  - Hyperbilirubinaemia [Unknown]
  - Jaundice neonatal [Unknown]
